FAERS Safety Report 25491816 (Version 1)
Quarter: 2025Q2

REPORT INFORMATION
  Report Type: Spontaneous
  Country: US (occurrence: US)
  Receive Date: 20250630
  Receipt Date: 20250630
  Transmission Date: 20250716
  Serious: No
  Sender: KARYOPHARM THERAPEUTICS
  Company Number: US-KARYOPHARM-2025KPT100427

PATIENT

DRUGS (27)
  1. SELINEXOR [Suspect]
     Active Substance: SELINEXOR
     Indication: Plasma cell myeloma
     Route: 048
  2. ACYCLOVIR [Concomitant]
     Active Substance: ACYCLOVIR
  3. ALBUTEROL SULFATE [Concomitant]
     Active Substance: ALBUTEROL SULFATE
  4. ALBUTEROL SULFATE [Concomitant]
     Active Substance: ALBUTEROL SULFATE
  5. AMOXICILLIN [Concomitant]
     Active Substance: AMOXICILLIN
  6. ASPIRIN [Concomitant]
     Active Substance: ASPIRIN
  7. BENZONATATE [Concomitant]
     Active Substance: BENZONATATE
  8. BORTEZOMIB [Concomitant]
     Active Substance: BORTEZOMIB
  9. SYMBICORT [Concomitant]
     Active Substance: BUDESONIDE\FORMOTEROL FUMARATE DIHYDRATE
  10. CLOTRIMAZOLE [Concomitant]
     Active Substance: CLOTRIMAZOLE
  11. RESTASIS [Concomitant]
     Active Substance: CYCLOSPORINE
  12. DEXAMETHASONE [Concomitant]
     Active Substance: DEXAMETHASONE
  13. DICLOFENAC [Concomitant]
     Active Substance: DICLOFENAC
  14. FINASTERIDE [Concomitant]
     Active Substance: FINASTERIDE
  15. IPRATROPIUM [Concomitant]
     Active Substance: IPRATROPIUM
  16. LOSARTAN [Concomitant]
     Active Substance: LOSARTAN
  17. METFORMIN [Concomitant]
     Active Substance: METFORMIN HYDROCHLORIDE
  18. MIRTAZAPINE [Concomitant]
     Active Substance: MIRTAZAPINE
  19. MOMETASONE [Concomitant]
     Active Substance: MOMETASONE
  20. ONDANSETRON [Concomitant]
     Active Substance: ONDANSETRON
  21. PANTOPRAZOLE [Concomitant]
     Active Substance: PANTOPRAZOLE
  22. SIMVASTATIN [Concomitant]
     Active Substance: SIMVASTATIN
  23. SODIUM FLUORIDE [Concomitant]
     Active Substance: SODIUM FLUORIDE
  24. TAMSULOSIN [Concomitant]
     Active Substance: TAMSULOSIN
  25. TRAMADOL [Concomitant]
     Active Substance: TRAMADOL
  26. ZOLEDRONIC [Concomitant]
     Active Substance: ZOLEDRONIC ACID
  27. ZOLPIDEM [Concomitant]
     Active Substance: ZOLPIDEM TARTRATE

REACTIONS (4)
  - Muscle spasms [Recovering/Resolving]
  - Abdominal pain upper [Recovering/Resolving]
  - Diarrhoea [Recovering/Resolving]
  - Fatigue [Recovering/Resolving]
